FAERS Safety Report 25049817 (Version 1)
Quarter: 2025Q1

REPORT INFORMATION
  Report Type: Spontaneous
  Country: US (occurrence: None)
  Receive Date: 20250306
  Receipt Date: 20250306
  Transmission Date: 20250408
  Serious: Yes (Death, Hospitalization)
  Sender: FDA-CTU
  Company Number: None

PATIENT
  Age: 74 Year
  Sex: Female

DRUGS (15)
  1. TADALAFIL [Suspect]
     Active Substance: TADALAFIL
     Indication: Pulmonary arterial hypertension
     Dosage: 20MG QD ORAL
     Route: 048
     Dates: start: 20230803, end: 20250129
  2. AMBRISENTAN [Suspect]
     Active Substance: AMBRISENTAN
  3. LEVOTHYROXINE [Concomitant]
     Active Substance: LEVOTHYROXINE
  4. SERTRALINE [Concomitant]
     Active Substance: SERTRALINE HYDROCHLORIDE
  5. VITAMIN D2 [Concomitant]
     Active Substance: ERGOCALCIFEROL
  6. MVI with folic acid [Concomitant]
  7. ADVAIR HFA [Concomitant]
     Active Substance: FLUTICASONE PROPIONATE\SALMETEROL XINAFOATE
  8. NYSTATIN [Concomitant]
     Active Substance: NYSTATIN
  9. FAMOTIDINE [Concomitant]
     Active Substance: FAMOTIDINE
  10. METOPROLOL [Concomitant]
     Active Substance: METOPROLOL
  11. ALLOPURINOL [Concomitant]
     Active Substance: ALLOPURINOL
  12. ATORVASTATIN [Concomitant]
     Active Substance: ATORVASTATIN
  13. ALBUTEROL SULFATE [Concomitant]
     Active Substance: ALBUTEROL SULFATE
  14. ASPIRIN [Concomitant]
     Active Substance: ASPIRIN
  15. VITAMIN D3 [Concomitant]
     Active Substance: CHOLECALCIFEROL

REACTIONS (5)
  - Confusional state [None]
  - Fall [None]
  - Cervical vertebral fracture [None]
  - Spinal compression fracture [None]
  - Spinal compression fracture [None]

NARRATIVE: CASE EVENT DATE: 20250124
